FAERS Safety Report 8464854-4 (Version None)
Quarter: 2012Q2

REPORT INFORMATION
  Report Type: 
  Country: None (occurrence: None)
  Receive Date: 20120626
  Receipt Date: 20120621
  Transmission Date: 20120825
  Serious: Yes (Other)
  Sender: FDA-Public Use
  Company Number: US-TEVA-344425USA

PATIENT
  Sex: Female

DRUGS (1)
  1. CENESTIN [Suspect]
     Dosage: TOOK FOR APPROXIMATELY 10 YEARS
     Dates: end: 20120401

REACTIONS (1)
  - CONVULSION [None]
